FAERS Safety Report 14768502 (Version 2)
Quarter: 2018Q2

REPORT INFORMATION
  Report Type: Other
  Country: RO (occurrence: RO)
  Receive Date: 20180417
  Receipt Date: 20180608
  Transmission Date: 20180711
  Serious: Yes (Hospitalization, Other)
  Sender: FDA-Public Use
  Company Number: RO-MACLEODS PHARMACEUTICALS US LTD-MAC2018012605

PATIENT

DRUGS (13)
  1. METHYLPREDNISOLONE. [Suspect]
     Active Substance: METHYLPREDNISOLONE
     Dosage: 1 G, QD, DIVIDED IN TWO DOSES
     Route: 042
  2. PREDNISONE. [Suspect]
     Active Substance: PREDNISONE
     Indication: UVEITIS
     Dosage: UNK
     Route: 065
  3. BEVACIZUMAB. [Concomitant]
     Active Substance: BEVACIZUMAB
     Indication: PRODUCT USED FOR UNKNOWN INDICATION
     Dosage: UNK, CORTICOSTEROIDS; INTRAVITREAL, SYSTEMIC AND TOPIC
     Route: 065
     Dates: start: 2015, end: 2016
  4. METHYLPREDNISOLONE. [Suspect]
     Active Substance: METHYLPREDNISOLONE
     Indication: VISUAL ACUITY REDUCED
     Dosage: 32 MILLIGRAM, QD, DECREASING GRADUALLY
     Route: 048
  5. BEVACIZUMAB. [Concomitant]
     Active Substance: BEVACIZUMAB
     Dosage: UNK, CORTICOSTEROIDS; INTRAVITREAL, SYSTEMIC AND TOPIC
     Route: 065
     Dates: start: 2015, end: 2016
  6. ARIPIPRAZOLE TABLET [Suspect]
     Active Substance: ARIPIPRAZOLE
     Indication: SCHIZOPHRENIA
     Dosage: UNK
     Route: 048
  7. DEXAMETHASONE. [Suspect]
     Active Substance: DEXAMETHASONE
     Indication: PRODUCT USED FOR UNKNOWN INDICATION
     Dosage: UNK
     Route: 065
     Dates: start: 2015
  8. VANCOMYCIN [Concomitant]
     Active Substance: VANCOMYCIN
     Indication: PRODUCT USED FOR UNKNOWN INDICATION
     Dosage: UNK
     Route: 065
  9. METHYLPREDNISOLONE. [Suspect]
     Active Substance: METHYLPREDNISOLONE
     Dosage: UNK
     Route: 065
     Dates: start: 2015, end: 2016
  10. METHOTREXATE. [Concomitant]
     Active Substance: METHOTREXATE
     Indication: UVEITIS
     Dosage: UNK
     Route: 065
     Dates: start: 201605
  11. TRIAMCINOLONE [Concomitant]
     Active Substance: TRIAMCINOLONE
     Indication: PRODUCT USED FOR UNKNOWN INDICATION
     Dosage: UNK, CORTICOSTEROIDS; INTRAVITREAL, SYSTEMIC AND TOPIC
     Route: 065
     Dates: start: 2015, end: 2016
  12. PREDNISONE. [Suspect]
     Active Substance: PREDNISONE
     Indication: CHOROIDITIS
     Dosage: UNK
     Route: 065
     Dates: start: 201605
  13. METHOTREXATE. [Concomitant]
     Active Substance: METHOTREXATE
     Indication: CHOROIDITIS
     Dosage: 12.5 MILLIGRAM, Q.W.
     Route: 065
     Dates: start: 201605

REACTIONS (7)
  - Drug ineffective [Unknown]
  - Cushing^s syndrome [Unknown]
  - Birdshot chorioretinopathy [Recovering/Resolving]
  - Chorioretinopathy [Recovering/Resolving]
  - Uveitis [Not Recovered/Not Resolved]
  - Retinal exudates [Unknown]
  - Choroiditis [Not Recovered/Not Resolved]
